FAERS Safety Report 5890511-4 (Version None)
Quarter: 2008Q3

REPORT INFORMATION
  Report Type: 
  Country: None (occurrence: None)
  Receive Date: 20080922
  Receipt Date: 20080917
  Transmission Date: 20090109
  Serious: Yes (Disabling, Other)
  Sender: FDA-Public Use
  Company Number: PHEH2008US07786

PATIENT
  Sex: Female

DRUGS (1)
  1. ZELNORM [Suspect]
     Dosage: UNK
     Dates: start: 20060601, end: 20060901

REACTIONS (3)
  - GENERAL PHYSICAL HEALTH DETERIORATION [None]
  - INJURY [None]
  - MYOCARDIAL INFARCTION [None]
